FAERS Safety Report 8388469-1 (Version None)
Quarter: 2012Q2

REPORT INFORMATION
  Report Type: 
  Country: None (occurrence: None)
  Receive Date: 20120525
  Receipt Date: 20120515
  Transmission Date: 20120825
  Serious: No
  Sender: FDA-Public Use
  Company Number: US-ASTRAZENECA-2012SE31427

PATIENT
  Age: 46 Year
  Sex: Female

DRUGS (2)
  1. OTHER [Suspect]
     Route: 065
  2. NEXIUM [Suspect]
     Route: 048

REACTIONS (2)
  - GASTRITIS [None]
  - DRUG INEFFECTIVE [None]
